FAERS Safety Report 18817443 (Version 1)
Quarter: 2021Q1

REPORT INFORMATION
  Report Type: Spontaneous
  Country: DE (occurrence: DE)
  Receive Date: 20210201
  Receipt Date: 20210201
  Transmission Date: 20210419
  Serious: Yes (Other)
  Sender: FDA-Public Use
  Company Number: DE-TEVA-2021-DE-1874194

PATIENT
  Age: 39 Year
  Sex: Male
  Weight: 73 kg

DRUGS (5)
  1. LEVETIRACETAM. [Suspect]
     Active Substance: LEVETIRACETAM
     Indication: EPILEPSY
     Dosage: 2X1000 MG DISCONTINUED IN 250 MG INCREMENTS, LAST 250 MG, UNIT DOSE: 250 MILLIGRAM
     Route: 048
     Dates: end: 20210113
  2. LEVETIRACETAM. [Suspect]
     Active Substance: LEVETIRACETAM
     Dosage: 2X1000 MG DISCONTINUED IN 250 MG INCREMENTS, LAST 250 MG, UNIT DOSE: 2000MG
     Route: 048
     Dates: start: 20201015
  3. METOPROLOL. [Concomitant]
     Active Substance: METOPROLOL
  4. ASPIRIN. [Concomitant]
     Active Substance: ASPIRIN
  5. ATORVASTATIN [Concomitant]
     Active Substance: ATORVASTATIN

REACTIONS (8)
  - Mental impairment [Recovering/Resolving]
  - Dizziness [Recovering/Resolving]
  - Fatigue [Unknown]
  - Erythema [Unknown]
  - Micturition urgency [Recovering/Resolving]
  - Gait disturbance [Recovering/Resolving]
  - Daydreaming [Recovering/Resolving]
  - Pyrexia [Recovering/Resolving]

NARRATIVE: CASE EVENT DATE: 2021
